FAERS Safety Report 10244247 (Version 4)
Quarter: 2014Q3

REPORT INFORMATION
  Report Type: Report from Study
  Country: US (occurrence: US)
  Receive Date: 20140618
  Receipt Date: 20140821
  Transmission Date: 20150326
  Serious: Yes (Hospitalization)
  Sender: FDA-Public Use
  Company Number: US-ACTELION-A-NJ2014-100123

PATIENT
  Age: 67 Year
  Sex: Female

DRUGS (2)
  1. VELETRI [Suspect]
     Active Substance: EPOPROSTENOL
     Dosage: 11 NG/KG, UNK
     Route: 042
     Dates: start: 20140325
  2. VELETRI [Suspect]
     Active Substance: EPOPROSTENOL
     Indication: COR PULMONALE CHRONIC
     Dosage: 11 NG/KG, PER MIN
     Route: 042
     Dates: start: 20140310

REACTIONS (7)
  - Memory impairment [Unknown]
  - Localised infection [Unknown]
  - Catheter site pain [Unknown]
  - Abdominal cavity drainage [Unknown]
  - Catheter site erythema [Unknown]
  - Catheter site swelling [Unknown]
  - Fatigue [Unknown]
